FAERS Safety Report 7347924-3 (Version None)
Quarter: 2011Q1

REPORT INFORMATION
  Report Type: 
  Country: None (occurrence: None)
  Receive Date: 20110302
  Receipt Date: 20110217
  Transmission Date: 20110831
  Serious: Yes (Hospitalization)
  Sender: FDA-Public Use
  Company Number: 2011-0483

PATIENT
  Age: 13 Year
  Sex: Male
  Weight: 14.6 kg

DRUGS (2)
  1. INCRELEX (INCRELEX 10MG/ML) (MECASEMIN) (MECASERMIN) [Suspect]
     Indication: GROWTH RETARDATION
     Dosage: 96 UNITS (48 UNITS, 2 IN 1D), PARENTERAL
     Route: 051
     Dates: start: 20080701, end: 20090701
  2. SOMATROPIN RDNA [Concomitant]

REACTIONS (1)
  - CHRONIC MYELOMONOCYTIC LEUKAEMIA [None]
